FAERS Safety Report 5307187-7 (Version None)
Quarter: 2007Q2

REPORT INFORMATION
  Report Type: 
  Country: None (occurrence: None)
  Receive Date: 20070420
  Receipt Date: 20070420
  Transmission Date: 20071010
  Serious: No
  Sender: FDA-Public Use
  Company Number: None

PATIENT
  Sex: Male
  Weight: 99.7913 kg

DRUGS (5)
  1. RISPERDONE [Suspect]
     Indication: DEPRESSION
     Dosage: 1MG TWICE DAILY PO  ESTIMATE 1-2 MONTHS
     Route: 048
  2. EFFEXOR [Suspect]
     Indication: DEPRESSION
     Dosage: 150MG ONCE DAILY PO ESTIMATE MONTHS TO YEAR-S
     Route: 048
  3. DESFLURANE [Concomitant]
  4. PROPOFOL [Concomitant]
  5. FENTANYL [Concomitant]

REACTIONS (7)
  - AMNESIA [None]
  - CEREBROVASCULAR ACCIDENT [None]
  - CONGENITAL ARTERIAL MALFORMATION [None]
  - HUMERUS FRACTURE [None]
  - ISCHAEMIC STROKE [None]
  - PROCEDURAL HYPOTENSION [None]
  - RADIUS FRACTURE [None]
